FAERS Safety Report 7717659-3 (Version None)
Quarter: 2011Q3

REPORT INFORMATION
  Report Type: 
  Country: None (occurrence: None)
  Receive Date: 20110830
  Receipt Date: 20110823
  Transmission Date: 20111222
  Serious: Yes (Life-Threatening, Hospitalization)
  Sender: FDA-Public Use
  Company Number: JP-BRISTOL-MYERS SQUIBB COMPANY-13804372

PATIENT
  Age: 39 Year
  Sex: Male

DRUGS (9)
  1. NORVIR [Suspect]
     Indication: HIV INFECTION
     Dosage: 28JUL04-24APR05: 271 DAYS 14JUL08-CONT.CAP. NORVIR SOFT
     Route: 048
     Dates: start: 20040728
  2. ANTIHEMOPHILIC FACTOR (HUMAN) [Concomitant]
     Indication: HAEMOPHILIA
     Dosage: 1DF= UNDER 1000 UNIT.1-3 TIMES/MONTH.INJ
     Route: 042
     Dates: start: 20050401, end: 20050411
  3. ZERIT [Suspect]
     Indication: HIV INFECTION
     Route: 048
     Dates: start: 19981221, end: 20050424
  4. EFAVIRENZ [Suspect]
     Indication: HIV INFECTION
     Route: 048
     Dates: start: 20050425, end: 20080713
  5. NEO-MINOPHAGEN C [Concomitant]
     Indication: HEPATITIS C
     Dosage: INJ
     Route: 042
     Dates: start: 20050401, end: 20050615
  6. REYATAZ [Suspect]
     Indication: HIV INFECTION
     Dosage: 30JAN04-27JUL04 400 MG (180DAYS). 28JUL04-24APR05 300 MG.CAP
     Route: 048
     Dates: start: 20040130, end: 20050424
  7. EPIVIR [Suspect]
     Indication: HIV INFECTION
     Dosage: ALSO 300MG ON 25APR2005-23MAY2005.TAB
     Route: 048
     Dates: start: 19971229, end: 20050523
  8. VIREAD [Suspect]
     Indication: HIV INFECTION
     Dosage: TAB
     Route: 048
     Dates: start: 20050425, end: 20050523
  9. KOGENATE [Concomitant]
     Indication: HAEMOPHILIA
     Dosage: KOGENATE-FS.1DF= UNDER 1000 UNIT. 1-3 TIMES/MONTH.INJ.DOSE NOT CHANGED.
     Route: 042
     Dates: start: 20050412

REACTIONS (1)
  - HEPATIC CIRRHOSIS [None]
